FAERS Safety Report 5809884-3 (Version None)
Quarter: 2008Q3

REPORT INFORMATION
  Report Type: 
  Country: None (occurrence: None)
  Receive Date: 20080715
  Receipt Date: 20080710
  Transmission Date: 20090109
  Serious: Yes (Death)
  Sender: FDA-Public Use
  Company Number: US-BRISTOL-MYERS SQUIBB COMPANY-14256143

PATIENT
  Age: 39 Year
  Sex: Female
  Weight: 52 kg

DRUGS (8)
  1. CYTOXAN [Suspect]
     Indication: MULTIPLE SCLEROSIS
     Route: 042
     Dates: start: 20070701
  2. REBIF [Suspect]
     Indication: MULTIPLE SCLEROSIS
     Route: 058
     Dates: start: 20061109, end: 20071109
  3. ZANAFLEX [Concomitant]
     Indication: MULTIPLE SCLEROSIS
  4. KEPPRA [Concomitant]
     Indication: CONVULSION
  5. ROBAXIN [Concomitant]
     Indication: MULTIPLE SCLEROSIS
  6. SANCTURA [Concomitant]
     Indication: BLADDER DISORDER
  7. LEXAPRO [Concomitant]
     Indication: MULTIPLE SCLEROSIS
  8. NEURONTIN [Concomitant]
     Indication: MULTIPLE SCLEROSIS

REACTIONS (1)
  - MYOCARDIAL INFARCTION [None]
